FAERS Safety Report 12914213 (Version 1)
Quarter: 2016Q4

REPORT INFORMATION
  Report Type: Spontaneous
  Country: US (occurrence: US)
  Receive Date: 20161106
  Receipt Date: 20161106
  Transmission Date: 20170207
  Serious: Yes (Other)
  Sender: FDA-Public Use
  Company Number: US-ASTRAZENECA-2016SF14886

PATIENT
  Age: 47 Year
  Sex: Female
  Weight: 72.6 kg

DRUGS (1)
  1. PRILOSEC [Suspect]
     Active Substance: OMEPRAZOLE MAGNESIUM
     Indication: GASTROOESOPHAGEAL REFLUX DISEASE
     Route: 048
     Dates: start: 1999, end: 20161021

REACTIONS (6)
  - Pelvic neoplasm [Unknown]
  - Glomerular filtration rate decreased [Unknown]
  - Renal impairment [Unknown]
  - Blood creatinine increased [Unknown]
  - Renal injury [Unknown]
  - Incorrect drug administration duration [Unknown]

NARRATIVE: CASE EVENT DATE: 1999
